FAERS Safety Report 15845537 (Version 3)
Quarter: 2021Q2

REPORT INFORMATION
  Report Type: Spontaneous
  Country: US (occurrence: US)
  Receive Date: 20190119
  Receipt Date: 20210519
  Transmission Date: 20210716
  Serious: No
  Sender: FDA-Public Use
  Company Number: US-JNJFOC-20161010012

PATIENT
  Age: 13 Year
  Sex: Male

DRUGS (10)
  1. CLONIDINE                          /00171102/ [Suspect]
     Active Substance: CLONIDINE
     Indication: PRODUCT USED FOR UNKNOWN INDICATION
     Dosage: 2010?PRESENT
     Route: 065
     Dates: start: 2010
  2. RISPERIDONE. [Suspect]
     Active Substance: RISPERIDONE
     Indication: AUTISM SPECTRUM DISORDER
     Route: 065
     Dates: start: 20130410, end: 20131004
  3. ABILIFY [Suspect]
     Active Substance: ARIPIPRAZOLE
     Indication: PRODUCT USED FOR UNKNOWN INDICATION
     Dosage: 2010?PRESENT
     Route: 065
     Dates: start: 2010
  4. RISPERDAL [Suspect]
     Active Substance: RISPERIDONE
     Indication: AUTISM SPECTRUM DISORDER
     Dosage: 1 MG/ML
     Route: 048
     Dates: start: 20130118, end: 20130729
  5. RISPERDAL [Suspect]
     Active Substance: RISPERIDONE
     Indication: AGGRESSION
  6. RISPERDAL [Suspect]
     Active Substance: RISPERIDONE
     Indication: AGGRESSION
  7. RISPERDAL [Suspect]
     Active Substance: RISPERIDONE
     Indication: AUTISM SPECTRUM DISORDER
     Dosage: 1 MG/ML
     Route: 048
     Dates: start: 20080205, end: 20130828
  8. RISPERDAL [Suspect]
     Active Substance: RISPERIDONE
     Indication: AGGRESSION
  9. RISPERIDONE. [Suspect]
     Active Substance: RISPERIDONE
     Indication: AGGRESSION
  10. RISPERDAL [Suspect]
     Active Substance: RISPERIDONE
     Indication: AUTISM SPECTRUM DISORDER
     Dosage: 1.5 MG
     Route: 048
     Dates: start: 20120607, end: 20120715

REACTIONS (3)
  - Gynaecomastia [Not Recovered/Not Resolved]
  - Insomnia [Unknown]
  - Emotional distress [Unknown]

NARRATIVE: CASE EVENT DATE: 20130729
